FAERS Safety Report 4435339-7 (Version None)
Quarter: 2004Q3

REPORT INFORMATION
  Report Type: 
  Country: None (occurrence: None)
  Receive Date: 20040827
  Receipt Date: 20040824
  Transmission Date: 20050211
  Serious: Yes (Life-Threatening, Hospitalization)
  Sender: FDA-Public Use
  Company Number: US-JNJFOC-20040604581

PATIENT
  Age: 68 Year
  Sex: Female
  Weight: 73.48 kg

DRUGS (4)
  1. DURAGESIC [Suspect]
     Route: 062
  2. DURAGESIC [Suspect]
     Indication: DRUG USE FOR UNKNOWN INDICATION
     Route: 062
  3. PERCOCET [Suspect]
  4. PERCOCET [Suspect]
     Indication: PAIN
     Dosage: 7.5 MG/500 MG

REACTIONS (5)
  - CONFUSIONAL STATE [None]
  - LOSS OF CONSCIOUSNESS [None]
  - MEDICATION ERROR [None]
  - OVERDOSE [None]
  - PULSE ABSENT [None]
